FAERS Safety Report 7510317-X (Version None)
Quarter: 2011Q2

REPORT INFORMATION
  Report Type: 
  Country: None (occurrence: None)
  Receive Date: 20110527
  Receipt Date: 20110519
  Transmission Date: 20111010
  Serious: Yes (Hospitalization, Other)
  Sender: FDA-Public Use
  Company Number: US-ELI_LILLY_AND_COMPANY-US201105006300

PATIENT
  Sex: Male

DRUGS (8)
  1. HUMALOG [Suspect]
     Dosage: 3 U, EACH MORNING
     Dates: start: 19720101
  2. HUMALOG [Suspect]
     Dosage: 6 U, OTHER
  3. HUMALOG [Suspect]
     Dosage: 6 U, OTHER
     Dates: start: 19720101
  4. ASPIRIN [Concomitant]
     Dosage: UNK
  5. LANTUS [Concomitant]
     Dosage: 26 U, EACH MORNING
  6. HUMALOG [Suspect]
     Indication: DIABETES MELLITUS
     Dosage: 3 U, EACH MORNING
  7. HUMALOG [Suspect]
     Dosage: 6 U, EACH EVENING
  8. HUMALOG [Suspect]
     Dosage: 6 U, EACH EVENING
     Dates: start: 19720101

REACTIONS (7)
  - APHASIA [None]
  - DRUG INEFFECTIVE [None]
  - BLOOD GLUCOSE INCREASED [None]
  - AMNESIA [None]
  - BLINDNESS UNILATERAL [None]
  - CEREBROVASCULAR ACCIDENT [None]
  - HEMIPLEGIA [None]
